FAERS Safety Report 8105078-X (Version None)
Quarter: 2011Q4

REPORT INFORMATION
  Report Type: 
  Country: None (occurrence: None)
  Receive Date: 20111222
  Receipt Date: 20110831
  Transmission Date: 20120403
  Serious: Yes (Hospitalization)
  Sender: FDA-Public Use
  Company Number: UTC-009529

PATIENT
  Age: 56 Year
  Sex: Female
  Weight: 53.6 kg

DRUGS (4)
  1. TRACLEER [Concomitant]
  2. DIURETICS (DIURETICS) [Concomitant]
  3. TYVASO [Suspect]
     Indication: PULMONARY ARTERIAL HYPERTENSION
     Dosage: 216 MCG  (54 MCG, 4 IN 1 D), INHALATION
     Route: 055
     Dates: start: 20100928
  4. REVATIO [Concomitant]

REACTIONS (1)
  - UPPER RESPIRATORY TRACT INFECTION [None]
